FAERS Safety Report 9911742 (Version 1)
Quarter: 2014Q1

REPORT INFORMATION
  Report Type: Report from Study
  Country: BR (occurrence: BR)
  Receive Date: 20140219
  Receipt Date: 20140219
  Transmission Date: 20141002
  Serious: Yes (Other)
  Sender: FDA-Public Use
  Company Number: PHHY2014BR020032

PATIENT
  Sex: Female
  Weight: 48 kg

DRUGS (3)
  1. DIOVAN HCT [Suspect]
     Indication: BLOOD PRESSURE ABNORMAL
     Dosage: 1 DF, IN MORNING
     Route: 048
     Dates: start: 20120507
  2. OSCAL D                            /07451701/ [Concomitant]
     Indication: BONE DISORDER
     Dosage: UNK UKN, UNK
     Dates: start: 20120507
  3. GLIFAGE [Concomitant]
     Indication: DIABETES MELLITUS
     Dosage: 75 MG, UNK
     Dates: start: 20120507

REACTIONS (2)
  - Labyrinthitis [Recovered/Resolved]
  - Dizziness [Recovered/Resolved]
